FAERS Safety Report 5359575-0 (Version None)
Quarter: 2007Q2

REPORT INFORMATION
  Report Type: 
  Country: None (occurrence: None)
  Receive Date: 20070530
  Receipt Date: 20061103
  Transmission Date: 20071010
  Serious: Yes (Hospitalization)
  Sender: FDA-Public Use
  Company Number: US200606003572

PATIENT
  Sex: Female
  Weight: 87.1 kg

DRUGS (22)
  1. ZYPREXA [Suspect]
     Dosage: SEE IMAGE
     Dates: start: 20020416, end: 20040124
  2. ZYPREXA [Suspect]
     Dosage: SEE IMAGE
     Dates: start: 20040124
  3. CLONAZEPAM [Concomitant]
  4. RANITIDINE [Concomitant]
  5. RISPERIDONE [Concomitant]
  6. EFFEXOR [Concomitant]
  7. KLOR-CON [Concomitant]
  8. CEPHALEXIN [Concomitant]
  9. PROMETHAZINE [Concomitant]
  10. METHYLPREDNISOLONE [Concomitant]
  11. CYCLOBENZAPRINE HCL [Concomitant]
  12. NYSTATIN (NYSTATIN0 [Concomitant]
  13. BISOPROLOL W/HYDROCHLOROTHIAZIDE (BISOPROLOL, HYDROCHLOROTHIAZIDE) [Concomitant]
  14. HYDROXYZINE [Concomitant]
  15. BUSPIRONE HCL [Concomitant]
  16. GEODON (ZIPARSIDONE HYDROCHLORIDE) [Concomitant]
  17. ZITHROMAX [Concomitant]
  18. ADVAIR DISKUS 100/50 [Concomitant]
  19. SINGULAIR [Concomitant]
  20. ALBUTEROL [Concomitant]
  21. FLUCONAZOLE (FLCONAZOLE) [Concomitant]
  22. METOPROLOL TARTRATE [Concomitant]

REACTIONS (3)
  - DIABETES MELLITUS [None]
  - DIABETIC COMA [None]
  - EMOTIONAL DISTRESS [None]
